FAERS Safety Report 9694635 (Version 1)
Quarter: 2013Q4

REPORT INFORMATION
  Report Type: Report from Study
  Country: US (occurrence: US)
  Receive Date: 20131119
  Receipt Date: 20131119
  Transmission Date: 20140711
  Serious: Yes (Other)
  Sender: FDA-Public Use
  Company Number: US-ROCHE-1301329

PATIENT
  Age: 12 Year
  Sex: Female

DRUGS (9)
  1. CELLCEPT [Suspect]
     Indication: IMMUNOSUPPRESSION
     Route: 065
  2. VALCYTE [Suspect]
     Indication: PRODUCT USED FOR UNKNOWN INDICATION
     Route: 048
  3. ASPIRIN [Concomitant]
     Route: 048
  4. MAGNESIUM OXIDE [Concomitant]
     Route: 048
  5. MYFORTIC [Concomitant]
     Dosage: EVERY MORNING AND 180 MG EVERY NIGHT
     Route: 048
  6. MYFORTIC [Concomitant]
     Route: 048
  7. NITROFURANTOIN [Concomitant]
     Dosage: EVERY NIGHT
     Route: 048
  8. PREDNISONE [Concomitant]
     Route: 048
  9. PROGRAF [Concomitant]
     Dosage: AM AND PM
     Route: 048

REACTIONS (6)
  - Renal transplant [Unknown]
  - Tubulointerstitial nephritis [Unknown]
  - Atrophy [Unknown]
  - Blood creatinine increased [Unknown]
  - Urinary retention [Unknown]
  - Epstein-Barr viraemia [Unknown]
